FAERS Safety Report 7853926-0 (Version None)
Quarter: 2011Q4

REPORT INFORMATION
  Report Type: 
  Country: None (occurrence: None)
  Receive Date: 20111026
  Receipt Date: 20111023
  Transmission Date: 20120403
  Serious: No
  Sender: FDA-Public Use
  Company Number: US-PFIZER INC-2011256139

PATIENT
  Sex: Male
  Weight: 65.76 kg

DRUGS (2)
  1. IBUPROFEN (ADVIL) [Suspect]
     Indication: HEADACHE
     Dosage: UNK
     Route: 048
     Dates: end: 20111022
  2. IBUPROFEN [Concomitant]
     Indication: TOOTHACHE
     Dosage: 800 MG, AS NEEDED

REACTIONS (2)
  - PENILE PAIN [None]
  - DIARRHOEA [None]
